FAERS Safety Report 6390546-1 (Version None)
Quarter: 2009Q4

REPORT INFORMATION
  Report Type: 
  Country: None (occurrence: None)
  Receive Date: 20091006
  Receipt Date: 20090924
  Transmission Date: 20100525
  Serious: No
  Sender: FDA-Public Use
  Company Number: US-SOLVAY-00209004460

PATIENT
  Age: 54 Year
  Sex: Female
  Weight: 49.09 kg

DRUGS (2)
  1. ALLEGRA [Concomitant]
     Indication: SEASONAL ALLERGY
     Dosage: DAILY DOSE:  UNKNOWN, FREQUENCY: AS NEEDED
     Route: 048
  2. ANDROGEL [Suspect]
     Indication: ACCIDENTAL EXPOSURE
     Dosage: DAILY DOSE: 2.5 GRAM(S)
     Route: 062
     Dates: start: 20070101

REACTIONS (3)
  - BLOOD TESTOSTERONE INCREASED [None]
  - HIRSUTISM [None]
  - MOOD ALTERED [None]
